FAERS Safety Report 9665153 (Version 1)
Quarter: 2013Q4

REPORT INFORMATION
  Report Type: Spontaneous
  Country: US (occurrence: US)
  Receive Date: 20131101
  Receipt Date: 20131101
  Transmission Date: 20140711
  Serious: Yes (Other)
  Sender: FDA-Public Use
  Company Number: US-PERRIGO-13US010987

PATIENT
  Sex: Male
  Weight: 92.52 kg

DRUGS (2)
  1. NICOTINE POLACRILEX REGULAR 2 MG 029 [Suspect]
     Indication: SMOKING CESSATION THERAPY
     Dosage: 120 MG, QD
     Route: 002
     Dates: start: 2011
  2. INHALER [Concomitant]
     Indication: CHRONIC OBSTRUCTIVE PULMONARY DISEASE
     Dosage: UNKNOWN, UNKNOWN
     Route: 055

REACTIONS (8)
  - Intentional overdose [Unknown]
  - Angina pectoris [Recovered/Resolved]
  - Dyspnoea [Unknown]
  - Nervousness [Unknown]
  - Hot flush [Unknown]
  - Nicotine dependence [Unknown]
  - Incorrect drug administration duration [Unknown]
  - Wrong technique in drug usage process [Unknown]
